FAERS Safety Report 8548113-7 (Version None)
Quarter: 2012Q3

REPORT INFORMATION
  Report Type: 
  Country: None (occurrence: None)
  Receive Date: 20120730
  Receipt Date: 20120123
  Transmission Date: 20120928
  Serious: No
  Sender: FDA-Public Use
  Company Number: US-009507513-1207USA009870

PATIENT

DRUGS (6)
  1. NIACIN [Suspect]
  2. CORGARD [Suspect]
  3. VYTORIN [Suspect]
     Route: 048
  4. SEPTRA [Suspect]
  5. ROCEPHIN [Suspect]
  6. NIASPAN [Suspect]

REACTIONS (1)
  - DRUG HYPERSENSITIVITY [None]
